FAERS Safety Report 9167065 (Version 1)
Quarter: 2013Q1

REPORT INFORMATION
  Report Type: Spontaneous
  Country: GB (occurrence: GB)
  Receive Date: 20130318
  Receipt Date: 20130318
  Transmission Date: 20140127
  Serious: Yes (Hospitalization)
  Sender: FDA-Public Use
  Company Number: GB-009507513-1303GBR006674

PATIENT
  Age: 68 Year
  Sex: Male

DRUGS (4)
  1. JANUVIA [Suspect]
     Dosage: 100 MG, QD
     Dates: start: 2010
  2. STATIN (NYSTATIN) [Concomitant]
     Dosage: UNK
  3. METFORMIN [Concomitant]
     Dosage: UNK
  4. ACETAMINOPHEN (+) CODEINE PHOSPHATE [Concomitant]
     Indication: ANGINA PECTORIS
     Dosage: UNK

REACTIONS (6)
  - Influenza [Recovering/Resolving]
  - Interstitial lung disease [Recovering/Resolving]
  - Scar [Unknown]
  - Cough [Recovering/Resolving]
  - Arthralgia [Not Recovered/Not Resolved]
  - Myalgia [Not Recovered/Not Resolved]
